FAERS Safety Report 16981636 (Version 6)
Quarter: 2020Q4

REPORT INFORMATION
  Report Type: Report from Study
  Country: CA (occurrence: CA)
  Receive Date: 20191101
  Receipt Date: 20201208
  Transmission Date: 20210113
  Serious: Yes (Hospitalization)
  Sender: FDA-Public Use
  Company Number: PHHO2018CA008888

PATIENT
  Age: 13 Year
  Sex: Male
  Weight: 28.3 kg

DRUGS (10)
  1. CYCLOPHOSPHAMIDE. [Concomitant]
     Active Substance: CYCLOPHOSPHAMIDE
     Indication: CHEMOTHERAPY
     Dosage: 530 MG, OVER 1 HR
     Route: 042
     Dates: start: 20180619, end: 20180620
  2. FLUDARABINE [Concomitant]
     Active Substance: FLUDARABINE PHOSPHATE
     Indication: CHEMOTHERAPY
     Dosage: 31.5 MG, ONCE/SINGLE OVER 30 MINUTES
     Route: 065
     Dates: start: 20180619, end: 20180622
  3. CTL019(RE-GEN) [Suspect]
     Active Substance: TISAGENLECLEUCEL
     Indication: ACUTE LYMPHOCYTIC LEUKAEMIA
     Dosage: NO TREATMENT
     Route: 065
  4. CTL019(RE-GEN) [Suspect]
     Active Substance: TISAGENLECLEUCEL
     Dosage: 29 ML
     Route: 042
     Dates: start: 20180625, end: 20180625
  5. METHOTREXATE. [Suspect]
     Active Substance: METHOTREXATE
     Dosage: UNK
     Route: 037
     Dates: start: 20180428, end: 20180528
  6. VINCRISTINE [Suspect]
     Active Substance: VINCRISTINE
     Indication: LEUKAEMIA
     Dosage: 1.6 MG
     Route: 042
     Dates: start: 20180427, end: 20180608
  7. METHOTREXATE. [Suspect]
     Active Substance: METHOTREXATE
     Indication: LEUKAEMIA
     Dosage: 110 MG
     Route: 042
     Dates: start: 20180427, end: 20180608
  8. BLINATUMOMAB [Concomitant]
     Active Substance: BLINATUMOMAB
     Indication: PRODUCT USED FOR UNKNOWN INDICATION
     Route: 065
  9. DEXAMETHASONE. [Concomitant]
     Active Substance: DEXAMETHASONE
     Indication: LEUKAEMIA
     Dosage: 10.6 MG, ONCE/SINGLE
     Route: 065
     Dates: start: 20180428, end: 20180428
  10. DASATINIB. [Concomitant]
     Active Substance: DASATINIB
     Indication: LEUKAEMIA
     Dosage: 63.3 MG, QD
     Route: 048
     Dates: start: 20180427, end: 20180608

REACTIONS (14)
  - Tachycardia [Recovered/Resolved]
  - Bacterial infection [Recovered/Resolved]
  - Cellulitis [Recovered/Resolved]
  - Arthralgia [Recovered/Resolved]
  - Anaemia [Recovered/Resolved]
  - Platelet count decreased [Recovered/Resolved]
  - Pyrexia [Recovered/Resolved]
  - Sepsis [Recovered/Resolved]
  - Upper respiratory tract infection [Recovered/Resolved]
  - Jugular vein thrombosis [Recovered/Resolved]
  - Pyrexia [Recovered/Resolved]
  - Febrile neutropenia [Recovered/Resolved]
  - Tachycardia [Recovered/Resolved]
  - Pyrexia [Recovered/Resolved]

NARRATIVE: CASE EVENT DATE: 20180509
